FAERS Safety Report 8480763-9 (Version None)
Quarter: 2012Q2

REPORT INFORMATION
  Report Type: 
  Country: None (occurrence: None)
  Receive Date: 20120625
  Receipt Date: 20120612
  Transmission Date: 20120825
  Serious: Yes (Other)
  Sender: FDA-Public Use
  Company Number: WAES 1206USA00163

PATIENT
  Age: 91 Year
  Sex: Female

DRUGS (8)
  1. JANUVIA [Concomitant]
  2. METFORMIN HCL [Concomitant]
  3. PAXIL [Concomitant]
  4. FOSAMAX [Suspect]
     Indication: OSTEOPOROSIS
     Dosage: 900 MICROGRM/1X, IV
     Route: 042
     Dates: start: 20120528, end: 20120528
  5. DOGMATYL [Concomitant]
  6. DIFLUNISAL [Concomitant]
  7. ZILDASAC [Concomitant]
  8. RIZE [Concomitant]

REACTIONS (5)
  - FLUSHING [None]
  - BLOOD GLUCOSE DECREASED [None]
  - BLOOD PRESSURE INCREASED [None]
  - INFUSION RELATED REACTION [None]
  - VERTIGO [None]
